FAERS Safety Report 8312650-0 (Version None)
Quarter: 2012Q2

REPORT INFORMATION
  Report Type: 
  Country: None (occurrence: None)
  Receive Date: 20120426
  Receipt Date: 20120413
  Transmission Date: 20120825
  Serious: Yes (Death)
  Sender: FDA-Public Use
  Company Number: US-BRISTOL-MYERS SQUIBB COMPANY-16521734

PATIENT
  Age: 55 Year
  Sex: Female

DRUGS (13)
  1. CIMETIDINE [Suspect]
  2. CYCLOBENZAPRINE [Suspect]
  3. HYDROCODONE BITARTRATE [Suspect]
  4. OXYCODONE HCL [Suspect]
  5. MORPHINE [Suspect]
  6. GABAPENTIN [Suspect]
  7. NAPROXEN [Suspect]
  8. PRAVASTATIN SODIUM [Suspect]
  9. COCAINE [Suspect]
  10. MONTELUKAST [Suspect]
  11. EZETIMIBE/SIMVASTATIN [Suspect]
  12. LISINOPRIL [Suspect]
  13. ALPRAZOLAM [Suspect]

REACTIONS (1)
  - DEATH [None]
